FAERS Safety Report 7705467-9 (Version None)
Quarter: 2011Q3

REPORT INFORMATION
  Report Type: 
  Country: None (occurrence: None)
  Receive Date: 20110818
  Receipt Date: 20110808
  Transmission Date: 20111222
  Serious: Yes (Other)
  Sender: FDA-Public Use
  Company Number: AUR-APL-2011-04602

PATIENT
  Sex: Female

DRUGS (1)
  1. ALENDRONATE SODIUM [Suspect]
     Indication: PRODUCT USED FOR UNKNOWN INDICATION
     Dosage: (70 MG,1 WK),ORAL
     Route: 048

REACTIONS (4)
  - DYSPHAGIA [None]
  - THROAT IRRITATION [None]
  - OROPHARYNGEAL PAIN [None]
  - COUGH [None]
